APPROVED DRUG PRODUCT: CETIRIZINE HYDROCHLORIDE ALLERGY
Active Ingredient: CETIRIZINE HYDROCHLORIDE
Strength: 10MG
Dosage Form/Route: TABLET;ORAL
Application: A078680 | Product #004
Applicant: UNICHEM LABORATORIES LTD
Approved: Jun 26, 2009 | RLD: No | RS: No | Type: DISCN